FAERS Safety Report 4461182-9 (Version None)
Quarter: 2004Q3

REPORT INFORMATION
  Report Type: 
  Country: None (occurrence: None)
  Receive Date: 20040923
  Receipt Date: 20040909
  Transmission Date: 20050211
  Serious: Yes (Hospitalization, Other)
  Sender: FDA-Public Use
  Company Number: 2004-03988

PATIENT
  Age: 70 Year
  Sex: Male

DRUGS (3)
  1. TRIAMCINOLONE DIACETATE [Suspect]
     Indication: BACK PAIN
     Dosage: SEE IMAGE
     Route: 008
     Dates: start: 20040101
  2. TRIAMCINOLONE DIACETATE [Suspect]
     Indication: RADICULAR PAIN
     Dosage: SEE IMAGE
     Route: 008
     Dates: start: 20040101
  3. OPIOID ANALGESICS [Concomitant]

REACTIONS (6)
  - ANAESTHETIC COMPLICATION [None]
  - BACK PAIN [None]
  - EXTRADURAL ABSCESS [None]
  - LEUKOPENIA [None]
  - MENINGITIS [None]
  - OFF LABEL USE [None]
